FAERS Safety Report 16399988 (Version 2)
Quarter: 2019Q3

REPORT INFORMATION
  Report Type: Spontaneous
  Country: US (occurrence: US)
  Receive Date: 20190606
  Receipt Date: 20190709
  Transmission Date: 20191004
  Serious: Yes (Hospitalization)
  Sender: FDA-Public Use
  Company Number: US-CATALYST PHARMACEUTICALS, INC-2019CAT00168

PATIENT
  Age: 30 Year
  Sex: Female
  Weight: 63.95 kg

DRUGS (17)
  1. BENADRYL [Concomitant]
     Active Substance: DIPHENHYDRAMINE HYDROCHLORIDE
     Dosage: 100-125 MG NIGHTLY AS NEEDED
     Route: 048
  2. ZZZQUIL NIGHTTIME SLEEP-AID [Concomitant]
     Active Substance: DIPHENHYDRAMINE HYDROCHLORIDE
     Dosage: UNK
     Dates: end: 201905
  3. FIRDAPSE [Suspect]
     Active Substance: AMIFAMPRIDINE
     Indication: MYASTHENIC SYNDROME
     Dosage: 10 MG, 4X/DAY
     Route: 048
     Dates: start: 2017, end: 201904
  4. IBUPROFEN. [Concomitant]
     Active Substance: IBUPROFEN
     Dosage: 800 MG, UP TO 3X/DAY (EVERY 8 HOURS AS NEEDED)
  5. FIRDAPSE [Suspect]
     Active Substance: AMIFAMPRIDINE
     Dosage: 10 MG, 1X/DAY
     Dates: start: 201905, end: 201905
  6. FIRDAPSE [Suspect]
     Active Substance: AMIFAMPRIDINE
     Dosage: 10 MG, 4X/DAY
     Route: 048
     Dates: start: 201905
  7. IVIG (INTRAVENOUS IMMUNOGLOBULIN) [Concomitant]
     Active Substance: HUMAN IMMUNOGLOBULIN G
     Dosage: UNK
     Dates: start: 201811
  8. ESCITALOPRAM [Concomitant]
     Active Substance: ESCITALOPRAM OXALATE
     Dosage: 20 MG, 1X/DAY
     Route: 048
  9. VITAMIN B12 [Concomitant]
     Active Substance: CYANOCOBALAMIN
     Dosage: 500 MCG, 1X/DAY
     Route: 048
  10. MESTINON [Suspect]
     Active Substance: PYRIDOSTIGMINE BROMIDE
     Indication: MYASTHENIC SYNDROME
     Dosage: 4 DOSAGE UNITS EVERY 4 TO 6 HOURS
     Dates: end: 291905
  11. MESTINON [Suspect]
     Active Substance: PYRIDOSTIGMINE BROMIDE
     Dosage: 240 MG, 4X/DAY
     Dates: start: 201905, end: 201905
  12. FIRDAPSE [Suspect]
     Active Substance: AMIFAMPRIDINE
     Dosage: 10 MG, 4X/DAY
     Route: 048
     Dates: start: 201905, end: 201905
  13. MESTINON [Suspect]
     Active Substance: PYRIDOSTIGMINE BROMIDE
     Dosage: 180 MG, 1X/DAY AT NIGHT
     Route: 048
     Dates: start: 2019
  14. FIRDAPSE [Suspect]
     Active Substance: AMIFAMPRIDINE
     Dosage: 20 MG, 4X/DAY
     Route: 048
     Dates: start: 201904, end: 20190520
  15. MESTINON [Suspect]
     Active Substance: PYRIDOSTIGMINE BROMIDE
     Dosage: 120 MG, UP TO 4X/DAY (MAXIMUM DOSE)
     Route: 048
     Dates: start: 201905, end: 2019
  16. MESTINON [Suspect]
     Active Substance: PYRIDOSTIGMINE BROMIDE
     Dosage: 60 MG, 2X/DAY
     Route: 048
     Dates: start: 2019
  17. LITHIUM. [Suspect]
     Active Substance: LITHIUM
     Dosage: UNK

REACTIONS (14)
  - Therapeutic response shortened [Recovered/Resolved]
  - Diarrhoea [Unknown]
  - Insomnia [Recovered/Resolved]
  - Cholinergic syndrome [Recovered/Resolved]
  - Product dose omission [Recovered/Resolved]
  - Headache [Unknown]
  - Blood bilirubin increased [Recovering/Resolving]
  - Electrocardiogram T wave abnormal [Unknown]
  - Myasthenic syndrome [Recovering/Resolving]
  - Hypokalaemia [Recovered/Resolved]
  - Mental disorder [Recovering/Resolving]
  - Decubitus ulcer [Unknown]
  - Intentional product use issue [Recovered/Resolved]
  - Restrictive pulmonary disease [Unknown]

NARRATIVE: CASE EVENT DATE: 2019
